FAERS Safety Report 18891873 (Version 2)
Quarter: 2021Q1

REPORT INFORMATION
  Report Type: Report from Study
  Country: None (occurrence: GB)
  Receive Date: 20210215
  Receipt Date: 20210306
  Transmission Date: 20210420
  Serious: Yes (Other)
  Sender: FDA-Public Use
  Company Number: GB-ABBVIE-21K-167-3771991-00

PATIENT
  Sex: Male

DRUGS (1)
  1. HUMIRA [Suspect]
     Active Substance: ADALIMUMAB
     Indication: BEHCET^S SYNDROME
     Route: 058

REACTIONS (2)
  - Motor neurone disease [Unknown]
  - Off label use [Unknown]
